FAERS Safety Report 4662343-6 (Version None)
Quarter: 2005Q2

REPORT INFORMATION
  Report Type: 
  Country: None (occurrence: None)
  Receive Date: 20050516
  Receipt Date: 20050425
  Transmission Date: 20051028
  Serious: Yes (Other)
  Sender: FDA-Public Use
  Company Number: CA-JNJFOC-20050500581

PATIENT
  Age: 2 Year
  Sex: Male
  Weight: 15.88 kg

DRUGS (2)
  1. CHILDRENS TYLENOL LIQUID BUBBLEGUM [Suspect]
     Route: 049
  2. CHILDRENS TYLENOL LIQUID BUBBLEGUM [Suspect]
     Indication: DRUG USE FOR UNKNOWN INDICATION
     Route: 049

REACTIONS (4)
  - ACCIDENTAL DRUG INTAKE BY CHILD [None]
  - IRRITABILITY [None]
  - LETHARGY [None]
  - OVERDOSE [None]
